FAERS Safety Report 9581507 (Version 2)
Quarter: 2013Q4

REPORT INFORMATION
  Report Type: Spontaneous
  Country: US (occurrence: US)
  Receive Date: 20131002
  Receipt Date: 20131002
  Transmission Date: 20140711
  Serious: No
  Sender: FDA-Public Use
  Company Number: US-B.I. PHARMACEUTICALS,INC./RIDGEFIELD-2013-BI-21690BP

PATIENT
  Age: 70 Year
  Sex: Female
  Weight: 66 kg

DRUGS (3)
  1. COMBIVENT [Suspect]
     Indication: CHRONIC OBSTRUCTIVE PULMONARY DISEASE
     Dosage: STRENGTH: 20 MCG / 100 MCG; DAILY DOSE: 80 MCG/400 MCG.1PUFF QD
     Route: 055
     Dates: start: 20130629
  2. COMBIVENT [Suspect]
     Dosage: 1 PUF
     Route: 055
     Dates: start: 20130629
  3. COMBIVENT CFC [Concomitant]
     Indication: CHRONIC OBSTRUCTIVE PULMONARY DISEASE
     Dosage: STRENGTH: 18 MCG/103 MCG; DAILY DOSE: 144 MCG/824 MCG
     Route: 055
     Dates: start: 2008, end: 20130628

REACTIONS (4)
  - Cough [Not Recovered/Not Resolved]
  - Dyspnoea [Unknown]
  - Throat irritation [Unknown]
  - Drug ineffective [Recovered/Resolved]
